FAERS Safety Report 4579674-0 (Version None)
Quarter: 2005Q1

REPORT INFORMATION
  Report Type: 
  Country: None (occurrence: None)
  Receive Date: 20050210
  Receipt Date: 20050124
  Transmission Date: 20050727
  Serious: No
  Sender: FDA-Public Use
  Company Number: S05-USA-00383-01

PATIENT
  Age: 44 Year
  Sex: Female
  Weight: 103.8737 kg

DRUGS (7)
  1. LEXAPRO [Suspect]
     Indication: MIGRAINE
     Dosage: 20 MG QD PO
     Route: 048
     Dates: start: 20020101
  2. LUPRON [Suspect]
     Indication: ANAEMIA
     Dosage: 3.75 MG IM
     Route: 030
     Dates: start: 20040216, end: 20040418
  3. LUPRON [Suspect]
     Indication: UTERINE LEIOMYOMA
     Dosage: 3.75 MG IM
     Route: 030
     Dates: start: 20040216, end: 20040418
  4. LUPRON [Suspect]
  5. LUPRON [Suspect]
  6. TOPAMAX [Suspect]
     Indication: MIGRAINE
     Dosage: 100 MG QD PO
     Route: 048
     Dates: start: 20020101
  7. UNISOM [Suspect]
     Indication: INSOMNIA
     Dosage: 1 TABLET QD PO
     Route: 048

REACTIONS (6)
  - AMNESIA [None]
  - ANAEMIA [None]
  - DRUG INEFFECTIVE [None]
  - DRUG INTERACTION [None]
  - LICHEN PLANUS [None]
  - UTERINE LEIOMYOMA [None]
